FAERS Safety Report 6310323-7 (Version None)
Quarter: 2009Q3

REPORT INFORMATION
  Report Type: 
  Country: None (occurrence: None)
  Receive Date: 20090814
  Receipt Date: 20090810
  Transmission Date: 20100115
  Serious: Yes (Life-Threatening)
  Sender: FDA-Public Use
  Company Number: PHHY2009IT33741

PATIENT
  Sex: Female

DRUGS (3)
  1. VOLTADVANCE [Suspect]
     Indication: BACK PAIN
     Dosage: 50 MG, UNK
     Route: 048
     Dates: start: 20090611, end: 20090711
  2. CLARITHROMYCIN [Suspect]
     Indication: PYREXIA
     Route: 048
  3. AUGMENTIN [Suspect]
     Indication: PYREXIA
     Route: 048

REACTIONS (1)
  - ANAEMIA HAEMOLYTIC AUTOIMMUNE [None]
